FAERS Safety Report 10610494 (Version 1)
Quarter: 2014Q4

REPORT INFORMATION
  Report Type: Spontaneous
  Country: US (occurrence: None)
  Receive Date: 20141124
  Receipt Date: 20141124
  Transmission Date: 20150529
  Serious: Yes (Other)
  Sender: FDA-Public Use
  Company Number: 2014US009894

PATIENT
  Sex: Male

DRUGS (1)
  1. ELIGARD [Suspect]
     Active Substance: LEUPROLIDE ACETATE
     Indication: PROSTATE CANCER

REACTIONS (7)
  - Sacroiliitis [None]
  - Metastases to peripheral nervous system [None]
  - Musculoskeletal pain [None]
  - Concomitant disease progression [None]
  - Tendon disorder [None]
  - Hypoaesthesia [None]
  - Prostatic specific antigen increased [None]
